FAERS Safety Report 24077819 (Version 1)
Quarter: 2024Q3

REPORT INFORMATION
  Report Type: Report from Study
  Country: BR (occurrence: BR)
  Receive Date: 20240711
  Receipt Date: 20240711
  Transmission Date: 20241017
  Serious: Yes (Other)
  Sender: SANOFI AVENTIS
  Company Number: BR-SA-SAC20240705000832

PATIENT
  Age: 59 Year
  Sex: Female

DRUGS (1)
  1. AGALSIDASE BETA [Suspect]
     Active Substance: AGALSIDASE BETA
     Indication: Fabry^s disease
     Dosage: UNK UNK, QOW
     Route: 042

REACTIONS (2)
  - Deafness [Unknown]
  - Headache [Unknown]
